FAERS Safety Report 6607420-5 (Version None)
Quarter: 2010Q1

REPORT INFORMATION
  Report Type: 
  Country: None (occurrence: None)
  Receive Date: 20100301
  Receipt Date: 20100221
  Transmission Date: 20100710
  Serious: Yes (Death, Life-Threatening, Hospitalization)
  Sender: FDA-Public Use
  Company Number: IT-ELI_LILLY_AND_COMPANY-IT200601001751

PATIENT
  Sex: Male
  Weight: 73.5 kg

DRUGS (11)
  1. PEMETREXED [Suspect]
     Indication: MESOTHELIOMA
     Dosage: 910 MG, OTHER
     Route: 042
     Dates: start: 20050701, end: 20050812
  2. CISPLATIN [Suspect]
     Indication: MESOTHELIOMA
     Dosage: 136 MG, OTHER
     Route: 042
     Dates: start: 20050701, end: 20050812
  3. RADIATION [Suspect]
     Dosage: UNK, DAILY (1/D)
     Dates: start: 20051109, end: 20051221
  4. FOLIC ACID [Concomitant]
     Indication: PREMEDICATION
     Dates: start: 20050620, end: 20050901
  5. VITAMIN B-12 [Concomitant]
     Indication: PREMEDICATION
     Dates: start: 20050620, end: 20050822
  6. DEXAMETHASONE [Concomitant]
     Indication: PREMEDICATION
  7. VERAPAMIL [Concomitant]
     Indication: TACHYCARDIA PAROXYSMAL
     Dates: start: 20010101, end: 20060123
  8. AMIODARONE HYDROCHLORIDE [Concomitant]
     Indication: ATRIAL FIBRILLATION
     Dates: start: 20050920, end: 20060123
  9. ISOPTIN /GFR/ [Concomitant]
     Indication: TACHYCARDIA PAROXYSMAL
     Dates: start: 20050615, end: 20060114
  10. MEPRAL [Concomitant]
     Indication: PROPHYLAXIS
     Dates: start: 20050620, end: 20060123
  11. CODEINE PHOSPHATE AND ACETAMINOPHEN [Concomitant]
     Indication: PAIN
     Dates: start: 20051115, end: 20060123

REACTIONS (5)
  - ACUTE RESPIRATORY DISTRESS SYNDROME [None]
  - CARDIAC FAILURE [None]
  - COR PULMONALE ACUTE [None]
  - PERICARDIAL EFFUSION [None]
  - RESPIRATORY FAILURE [None]
